FAERS Safety Report 18511459 (Version 2)
Quarter: 2021Q1

REPORT INFORMATION
  Report Type: Report from Study
  Country: CA (occurrence: CA)
  Receive Date: 20201117
  Receipt Date: 20210205
  Transmission Date: 20210419
  Serious: Yes (Hospitalization)
  Sender: FDA-Public Use
  Company Number: CA-AMGEN-CANSL2020176338

PATIENT
  Age: 64 Year
  Sex: Male

DRUGS (2)
  1. MVASI [Suspect]
     Active Substance: BEVACIZUMAB-AWWB
     Dosage: 960 MILLIGRAM, Q2WK
     Route: 065
  2. MVASI [Suspect]
     Active Substance: BEVACIZUMAB-AWWB
     Indication: GLIOBLASTOMA
     Dosage: 900 MILLIGRAM, Q2WK
     Route: 065

REACTIONS (1)
  - Chest pain [Unknown]
